FAERS Safety Report 9676897 (Version 2)
Quarter: 2014Q1

REPORT INFORMATION
  Report Type: Spontaneous
  Country: US (occurrence: US)
  Receive Date: 20131107
  Receipt Date: 20140202
  Transmission Date: 20141002
  Serious: No
  Sender: FDA-Public Use
  Company Number: US-009507513-1311USA002201

PATIENT
  Sex: Male
  Weight: 84.81 kg

DRUGS (4)
  1. MIRALAX [Suspect]
     Indication: HAEMORRHOIDS
     Dosage: 17 G, QD
     Route: 062
     Dates: start: 20130726
  2. ASPIRIN [Concomitant]
     Indication: PRODUCT USED FOR UNKNOWN INDICATION
     Dosage: UNK, UNKNOWN
  3. CENTRUM SILVER [Concomitant]
     Indication: PRODUCT USED FOR UNKNOWN INDICATION
     Dosage: UNK, UNKNOWN
  4. VITAMIN D (UNSPECIFIED) [Concomitant]
     Indication: PRODUCT USED FOR UNKNOWN INDICATION
     Dosage: UNK, UNKNOWN

REACTIONS (3)
  - Jaundice [Recovered/Resolved]
  - Incorrect drug administration duration [Unknown]
  - Off label use [Unknown]
